FAERS Safety Report 9380200 (Version 1)
Quarter: 2013Q3

REPORT INFORMATION
  Report Type: Spontaneous
  Country: US (occurrence: None)
  Receive Date: 20130701
  Receipt Date: 20130701
  Transmission Date: 20140515
  Serious: No
  Sender: FDA-Public Use
  Company Number: None

PATIENT
  Age: 65 Year
  Sex: Male
  Weight: 79.4 kg

DRUGS (1)
  1. CLOZAPINE [Suspect]
     Route: 048
     Dates: start: 20130620, end: 20130626

REACTIONS (4)
  - Fatigue [None]
  - Somnolence [None]
  - Dizziness [None]
  - Gait disturbance [None]
